FAERS Safety Report 25282203 (Version 2)
Quarter: 2025Q3

REPORT INFORMATION
  Report Type: Spontaneous
  Country: US (occurrence: US)
  Receive Date: 20250508
  Receipt Date: 20250725
  Transmission Date: 20251020
  Serious: No
  Sender: Karo Pharma
  Company Number: US-Karo Pharma-2176340

PATIENT
  Age: 39 Year
  Sex: Female
  Weight: 83.9 kg

DRUGS (24)
  1. TERBINAFINE [Suspect]
     Active Substance: TERBINAFINE
     Indication: Psoriasis
  2. ALBENDAZOLE [Suspect]
     Active Substance: ALBENDAZOLE
  3. SEMAGLUTIDE [Suspect]
     Active Substance: SEMAGLUTIDE
  4. PREDNISONE [Suspect]
     Active Substance: PREDNISONE
  5. ETHINYL ESTRADIOL\LEVONORGESTREL [Suspect]
     Active Substance: ETHINYL ESTRADIOL\LEVONORGESTREL
  6. FLUOCINOLONE ACETONIDE [Suspect]
     Active Substance: FLUOCINOLONE ACETONIDE
  7. BIOTIN [Suspect]
     Active Substance: BIOTIN
  8. COSENTYX [Suspect]
     Active Substance: SECUKINUMAB
  9. ETONOGESTREL/ETHINYL ESTRADIOL [Suspect]
     Active Substance: ETHINYL ESTRADIOL\ETONOGESTREL
  10. BETAMETHASONE\CALCIPOTRIENE [Suspect]
     Active Substance: BETAMETHASONE\CALCIPOTRIENE
  11. SPIRONOLACTONE [Suspect]
     Active Substance: SPIRONOLACTONE
  12. TRETINOIN [Suspect]
     Active Substance: TRETINOIN
  13. ALBUTEROL SULFATE [Suspect]
     Active Substance: ALBUTEROL SULFATE
  14. FLUTICASONE [Suspect]
     Active Substance: FLUTICASONE
  15. MINOCYCLINE [Suspect]
     Active Substance: MINOCYCLINE HYDROCHLORIDE
  16. METHOTREXATE [Suspect]
     Active Substance: METHOTREXATE
  17. AZELASTINE. [Suspect]
     Active Substance: AZELASTINE HYDROCHLORIDE
  18. FLUTICASONE [Suspect]
     Active Substance: FLUTICASONE
  19. ISOTRETINOIN [Suspect]
     Active Substance: ISOTRETINOIN
  20. FOLIC ACID [Suspect]
     Active Substance: FOLIC ACID
  21. CLOBETASOL [Suspect]
     Active Substance: CLOBETASOL
  22. FERROUS FUMARATE [Suspect]
     Active Substance: FERROUS FUMARATE
  23. KETOCONAZOLE [Suspect]
     Active Substance: KETOCONAZOLE
  24. MONTELUKAST [Suspect]
     Active Substance: MONTELUKAST

REACTIONS (21)
  - Xerosis [Recovering/Resolving]
  - Pruritus genital [Unknown]
  - Proctalgia [Not Recovered/Not Resolved]
  - Erythema annulare [Unknown]
  - Body tinea [Unknown]
  - Cheilitis [Recovering/Resolving]
  - Rash [Not Recovered/Not Resolved]
  - Product use in unapproved indication [Unknown]
  - Therapeutic response decreased [Unknown]
  - Psoriasis [Unknown]
  - Arthralgia [Not Recovered/Not Resolved]
  - Skin exfoliation [Unknown]
  - Papule [Unknown]
  - Haemorrhoids [Unknown]
  - Skin burning sensation [Unknown]
  - Drug ineffective [Unknown]
  - Genital pain [Not Recovered/Not Resolved]
  - Acne [Recovering/Resolving]
  - Dermatitis [Recovering/Resolving]
  - Skin plaque [Unknown]
  - Anal pruritus [Unknown]
